FAERS Safety Report 25411095 (Version 1)
Quarter: 2025Q2

REPORT INFORMATION
  Report Type: Spontaneous
  Country: PH (occurrence: PH)
  Receive Date: 20250609
  Receipt Date: 20250609
  Transmission Date: 20250717
  Serious: Yes (Other)
  Sender: NOVARTIS
  Company Number: PH-002147023-NVSC2025PH088716

PATIENT
  Age: 62 Year
  Sex: Male

DRUGS (1)
  1. ENTRESTO [Suspect]
     Active Substance: SACUBITRIL\VALSARTAN
     Indication: Product used for unknown indication
     Route: 048

REACTIONS (5)
  - Cardiac failure congestive [Unknown]
  - Myocardial ischaemia [Unknown]
  - Type 2 diabetes mellitus [Unknown]
  - Benign prostatic hyperplasia [Unknown]
  - Wrong technique in product usage process [Unknown]
